FAERS Safety Report 16596861 (Version 1)
Quarter: 2019Q3

REPORT INFORMATION
  Report Type: Spontaneous
  Country: US (occurrence: US)
  Receive Date: 20190718
  Receipt Date: 20190718
  Transmission Date: 20191004
  Serious: No
  Sender: FDA-Public Use
  Company Number: None

PATIENT
  Age: 50 Year
  Sex: Female
  Weight: 67.5 kg

DRUGS (16)
  1. TRAMADOL. [Concomitant]
     Active Substance: TRAMADOL
  2. NEXIUM [Concomitant]
     Active Substance: ESOMEPRAZOLE MAGNESIUM
  3. CODEINE-GUAIFEN [Concomitant]
  4. XANAX [Concomitant]
     Active Substance: ALPRAZOLAM
  5. ZANTAC [Concomitant]
     Active Substance: RANITIDINE HYDROCHLORIDE
  6. ALBUTERNOL INHAILER [Concomitant]
  7. CIPROFLOXACIN. [Concomitant]
     Active Substance: CIPROFLOXACIN
  8. PREDNISONE. [Concomitant]
     Active Substance: PREDNISONE
  9. BENADRYL [Concomitant]
     Active Substance: DIPHENHYDRAMINE HYDROCHLORIDE
  10. EMGALITY [Suspect]
     Active Substance: GALCANEZUMAB-GNLM
     Indication: MIGRAINE PROPHYLAXIS
     Dosage: ?          QUANTITY:1 INJECTION(S);OTHER FREQUENCY:ONCE PER MONTH;?
     Route: 030
     Dates: start: 20190717, end: 20190717
  11. DOXYCYCLINE HYCATE [Concomitant]
  12. COMPOUND BIOIDENTICAL HORMONE REPLACEMENT CREAM [Concomitant]
  13. OINDANSETRON [Concomitant]
  14. PSEUDOEPHEDRINE. [Concomitant]
     Active Substance: PSEUDOEPHEDRINE HYDROCHLORIDE
  15. PROBIOTICS [Concomitant]
     Active Substance: PROBIOTICS NOS
  16. ALLEGRA [Concomitant]
     Active Substance: FEXOFENADINE HYDROCHLORIDE

REACTIONS (9)
  - Hypersensitivity [None]
  - Anxiety [None]
  - Feeling of body temperature change [None]
  - Drug hypersensitivity [None]
  - Tinnitus [None]
  - Insomnia [None]
  - Product storage error [None]
  - Headache [None]
  - Abdominal discomfort [None]

NARRATIVE: CASE EVENT DATE: 20190717
